FAERS Safety Report 6123519-4 (Version None)
Quarter: 2009Q1

REPORT INFORMATION
  Report Type: 
  Country: None (occurrence: None)
  Receive Date: 20090318
  Receipt Date: 20090306
  Transmission Date: 20090719
  Serious: Yes (Other)
  Sender: FDA-Public Use
  Company Number: GB-GENENTECH-279058

PATIENT

DRUGS (2)
  1. RAPTIVA [Suspect]
     Indication: PSORIASIS
     Dosage: 0.7 MG, X1
     Route: 058
  2. RAPTIVA [Suspect]
     Dosage: 1 ML/KG, 1/WEEK
     Route: 058

REACTIONS (2)
  - EYE OEDEMA [None]
  - ULCERATIVE KERATITIS [None]
